FAERS Safety Report 10250788 (Version 1)
Quarter: 2014Q2

REPORT INFORMATION
  Report Type: Report from Study
  Country: TH (occurrence: TH)
  Receive Date: 20140620
  Receipt Date: 20140620
  Transmission Date: 20141212
  Serious: Yes (Death)
  Sender: FDA-Public Use
  Company Number: TH-BAXTER-2014BAX033539

PATIENT
  Sex: 0

DRUGS (1)
  1. ENDOXAN 1 G [Suspect]
     Indication: LUPUS NEPHRITIS
     Route: 042

REACTIONS (1)
  - Death [Fatal]
